FAERS Safety Report 4409606-7 (Version None)
Quarter: 2004Q3

REPORT INFORMATION
  Report Type: 
  Country: None (occurrence: None)
  Receive Date: 20040723
  Receipt Date: 20040610
  Transmission Date: 20050211
  Serious: Yes (Other)
  Sender: FDA-Public Use
  Company Number: US-JNFOC-20040603854

PATIENT
  Age: 70 Year
  Sex: Female

DRUGS (5)
  1. ACETAMINOPHEN [Suspect]
     Indication: PAIN
     Dosage: 4-5 GM PER DAY PRN
     Dates: start: 20030301, end: 20030501
  2. DIOVAN [Concomitant]
  3. METOPROLOL (METOPROLOL) [Concomitant]
  4. FUROSEMIDE [Concomitant]
  5. WARFARIN (WARFARIN) [Concomitant]

REACTIONS (2)
  - ANAEMIA [None]
  - OVERDOSE [None]
